FAERS Safety Report 15731716 (Version 1)
Quarter: 2018Q4

REPORT INFORMATION
  Report Type: Spontaneous
  Country: US (occurrence: US)
  Receive Date: 20181217
  Receipt Date: 20181217
  Transmission Date: 20190205
  Serious: No
  Sender: FDA-Public Use
  Company Number: US-AKRON, INC.-2060269

PATIENT
  Age: 67 Year
  Sex: Male

DRUGS (4)
  1. LUMAGEN [Concomitant]
  2. DORZOLAMIDE HCL TIMOLOL MALEATE SOLUTION [Suspect]
     Active Substance: DORZOLAMIDE HYDROCHLORIDE\TIMOLOL MALEATE
     Route: 047
  3. TRAVATAN [Concomitant]
     Active Substance: TRAVOPROST
  4. ALPHAGAN P [Concomitant]
     Active Substance: BRIMONIDINE TARTRATE

REACTIONS (3)
  - Eye irritation [Not Recovered/Not Resolved]
  - Lacrimation increased [Not Recovered/Not Resolved]
  - Drug ineffective [Unknown]
